FAERS Safety Report 17736895 (Version 1)
Quarter: 2020Q2

REPORT INFORMATION
  Report Type: Spontaneous
  Country: GB (occurrence: GB)
  Receive Date: 20200502
  Receipt Date: 20200502
  Transmission Date: 20200714
  Serious: Yes (Disabling)
  Sender: FDA-Public Use
  Company Number: GB-AUROBINDO-AUR-APL-2020-021318

PATIENT
  Age: 17 Year
  Sex: Female
  Weight: 49 kg

DRUGS (5)
  1. MONTELUKAST [Suspect]
     Active Substance: MONTELUKAST SODIUM
     Indication: PRODUCT USED FOR UNKNOWN INDICATION
     Dosage: 10 MILLIGRAM, ONCE A DAY, AT NIGHT.
     Route: 065
     Dates: start: 20200407
  2. FLUTIFORM [Concomitant]
     Active Substance: FLUTICASONE PROPIONATE\FORMOTEROL FUMARATE
     Indication: ASTHMA
     Dosage: 4 DOSAGE FORM, ONCE A DAY (125)
     Route: 065
     Dates: start: 20190726
  3. SALBUTAMOL [Concomitant]
     Active Substance: ALBUTEROL
     Indication: PRODUCT USED FOR UNKNOWN INDICATION
     Dosage: 2 DOSAGE FORM, AS NECESSARY
     Route: 065
     Dates: start: 20190726
  4. GEDAREL [Concomitant]
     Indication: PRODUCT USED FOR UNKNOWN INDICATION
     Dosage: 1 DOSAGE FORM, AS DIRECTED
     Route: 065
     Dates: start: 20200310
  5. FOSTAIR [Concomitant]
     Active Substance: BECLOMETHASONE\FORMOTEROL
     Indication: PRODUCT USED FOR UNKNOWN INDICATION
     Dosage: 4 DOSAGE FORM, ONCE A DAY
     Route: 065
     Dates: start: 20200417

REACTIONS (2)
  - Somnolence [Recovering/Resolving]
  - Decreased appetite [Recovering/Resolving]

NARRATIVE: CASE EVENT DATE: 20200412
